FAERS Safety Report 4415510-0 (Version None)
Quarter: 2004Q3

REPORT INFORMATION
  Report Type: 
  Country: None (occurrence: None)
  Receive Date: 20040730
  Receipt Date: 20040519
  Transmission Date: 20050211
  Serious: Yes (Hospitalization)
  Sender: FDA-Public Use
  Company Number: 2004-DE-02979DE

PATIENT
  Age: 81 Year
  Sex: Male

DRUGS (7)
  1. SIFROL (PRAMIPEXOLE DIHYDROCHLORIDE) (TA) (PRAMIPEXOLE) [Suspect]
     Dosage: 1.8 MG (NR, 4 X 0, 45 MG/ DAY) PO
     Route: 048
  2. ENALAPRIL (NR) [Concomitant]
  3. FUROSEMID (NR) [Concomitant]
  4. ALLOPURINOL (NR) [Concomitant]
  5. MADOPAR (MADOPAR) (NR) [Concomitant]
  6. NOVODIGAL (DIGOXIN) (NR) [Concomitant]
  7. FERROSANOL (NR) [Concomitant]

REACTIONS (4)
  - CONDITION AGGRAVATED [None]
  - HALLUCINATION [None]
  - OVERDOSE [None]
  - RENAL FAILURE [None]
